FAERS Safety Report 9394825 (Version 1)
Quarter: 2013Q3

REPORT INFORMATION
  Report Type: Spontaneous
  Country: US (occurrence: None)
  Receive Date: 20130709
  Receipt Date: 20130709
  Transmission Date: 20140515
  Serious: Yes (Other)
  Sender: FDA-Public Use
  Company Number: None

PATIENT
  Sex: Male
  Weight: 90.72 kg

DRUGS (4)
  1. CEFUROXIME AXETIL [Suspect]
     Indication: UPPER RESPIRATORY TRACT INFECTION
     Dosage: 1 PILL TWICE DAILY MOUTH
     Route: 048
     Dates: start: 20130408, end: 20130418
  2. CEFUROXIME AXETIL [Suspect]
     Dosage: 1 PILL TWICE DAILY MOUTH
     Route: 048
     Dates: start: 20130408, end: 20130418
  3. MULTIPLE VITAMIN [Concomitant]
  4. ASPIRIN [Concomitant]

REACTIONS (2)
  - Ageusia [None]
  - Hyposmia [None]
